FAERS Safety Report 13020489 (Version 2)
Quarter: 2016Q4

REPORT INFORMATION
  Report Type: Spontaneous
  Country: JP (occurrence: JP)
  Receive Date: 20161212
  Receipt Date: 20161222
  Transmission Date: 20170207
  Serious: Yes (Life-Threatening, Hospitalization, Other)
  Sender: FDA-Public Use
  Company Number: JP-009507513-1610JPN000587

PATIENT
  Age: 21 Year
  Sex: Female
  Weight: 47 kg

DRUGS (9)
  1. AVASTIN [Suspect]
     Active Substance: BEVACIZUMAB
     Indication: MEDULLOBLASTOMA RECURRENT
     Dosage: DIVIDED DOSE FREQUENCY UNKNOWN, EVERY 2-4 WEEKS
     Route: 041
     Dates: start: 20160516, end: 20160628
  2. IRINOTECAN HYDROCHLORIDE. [Suspect]
     Active Substance: IRINOTECAN HYDROCHLORIDE
     Indication: MEDULLOBLASTOMA RECURRENT
     Dosage: 125 MG/M2, DIVIDED DOSE FREQUENCY UNKNOWN, EVERY 2-4 WEEKS
     Route: 041
     Dates: start: 20160516, end: 20160628
  3. BACTRAMIN [Concomitant]
     Active Substance: SULFAMETHOXAZOLE\TRIMETHOPRIM
     Indication: PROPHYLAXIS
     Dosage: 4 DF, BIW
     Route: 048
     Dates: end: 20160718
  4. E KEPPRA [Concomitant]
     Active Substance: LEVETIRACETAM
     Indication: SEIZURE
     Dosage: 500 MG, BID
     Route: 048
     Dates: start: 20151105, end: 20160718
  5. TEMODAL [Suspect]
     Active Substance: TEMOZOLOMIDE
     Indication: MEDULLOBLASTOMA RECURRENT
     Dosage: 150 MG/M2, UNK
     Route: 041
     Dates: start: 20160628, end: 20160702
  6. METHOTREXATE. [Concomitant]
     Active Substance: METHOTREXATE
     Indication: MEDULLOBLASTOMA RECURRENT
     Dosage: DAILY DOSE UNKNOWN
     Route: 024
  7. THYRADIN [Concomitant]
     Active Substance: LEVOTHYROXINE
     Indication: HYPOTHYROIDISM
     Dosage: 75 MICROGRAM, QD
     Route: 048
     Dates: end: 20160718
  8. TEMODAL [Suspect]
     Active Substance: TEMOZOLOMIDE
     Indication: MEDULLOBLASTOMA RECURRENT
     Dosage: 150 MG/M2, UNK
     Route: 048
     Dates: start: 20140107, end: 20140107
  9. TEMODAL [Suspect]
     Active Substance: TEMOZOLOMIDE
     Dosage: UNK
     Dates: start: 20140205, end: 20160520

REACTIONS (7)
  - Neutropenia [Recovered/Resolved]
  - Herpes virus infection [Unknown]
  - Diarrhoea [Recovered/Resolved]
  - Bone marrow failure [Unknown]
  - Cytomegalovirus infection [Recovered/Resolved]
  - Anaemia [Recovered/Resolved]
  - Platelet count decreased [Recovered/Resolved]

NARRATIVE: CASE EVENT DATE: 20160316
